FAERS Safety Report 21476705 (Version 1)
Quarter: 2022Q4

REPORT INFORMATION
  Report Type: Spontaneous
  Country: US (occurrence: US)
  Receive Date: 20221019
  Receipt Date: 20221019
  Transmission Date: 20230113
  Serious: Yes (Other)
  Sender: FDA-Public Use
  Company Number: US-ABBVIE-4166310

PATIENT
  Sex: Male

DRUGS (2)
  1. IBRUTINIB [Suspect]
     Active Substance: IBRUTINIB
     Indication: Product used for unknown indication
     Route: 050
     Dates: start: 2017, end: 202101
  2. IBRUTINIB [Suspect]
     Active Substance: IBRUTINIB
     Indication: Product used for unknown indication
     Route: 048
     Dates: start: 202101, end: 20220816

REACTIONS (5)
  - Squamous cell carcinoma [Unknown]
  - Eye disorder [Unknown]
  - Adverse drug reaction [Unknown]
  - Cataract [Unknown]
  - Deformity [Unknown]

NARRATIVE: CASE EVENT DATE: 20200101
